FAERS Safety Report 8766003 (Version 3)
Quarter: 2012Q4

REPORT INFORMATION
  Report Type: 
  Country: US (occurrence: US)
  Receive Date: 20120904
  Receipt Date: 20121205
  Transmission Date: 20130627
  Serious: No
  Sender: FDA-Public Use
  Company Number: US-009507513-1208USA000339

PATIENT

DRUGS (1)
  1. TICE BCG LIVE [Suspect]
     Indication: BLADDER CANCER
     Dosage: UNK
     Route: 026
     Dates: start: 2012

REACTIONS (5)
  - Pain [Recovered/Resolved]
  - Pyrexia [Recovered/Resolved]
  - Malaise [Recovered/Resolved]
  - Chills [Recovered/Resolved]
  - Influenza like illness [Recovered/Resolved]
